FAERS Safety Report 4874407-2 (Version None)
Quarter: 2005Q4

REPORT INFORMATION
  Report Type: 
  Country: None (occurrence: None)
  Receive Date: 20051201
  Receipt Date: 20050810
  Transmission Date: 20060501
  Serious: No
  Sender: FDA-Public Use
  Company Number: 2005PV001046

PATIENT
  Age: 31 Year
  Sex: Female
  Weight: 142.4295 kg

DRUGS (14)
  1. BYETTA [Suspect]
     Indication: DIABETES MELLITUS NON-INSULIN-DEPENDENT
     Dosage: 5 MCG;BID;SC
     Route: 058
     Dates: start: 20050804
  2. GLUCOPHAGE [Concomitant]
  3. AMARYL [Concomitant]
  4. ACTOS [Concomitant]
  5. IBUPROFEN [Concomitant]
  6. ZOCOR [Concomitant]
  7. CLARINEX [Concomitant]
  8. ASPIRIN [Concomitant]
  9. AVAPRO [Concomitant]
  10. SINGULAIR [Concomitant]
  11. ZETIA [Concomitant]
  12. BIRTH CONTROL PILLS [Concomitant]
  13. CRANBERRY PILLS [Concomitant]
  14. VERELAN PM [Concomitant]

REACTIONS (7)
  - ABDOMINAL DISTENSION [None]
  - BLOOD GLUCOSE DECREASED [None]
  - HYPERHIDROSIS [None]
  - INJECTION SITE HAEMORRHAGE [None]
  - INJECTION SITE IRRITATION [None]
  - THERAPEUTIC RESPONSE UNEXPECTED [None]
  - WEIGHT INCREASED [None]
